FAERS Safety Report 15316354 (Version 1)
Quarter: 2018Q3

REPORT INFORMATION
  Report Type: Spontaneous
  Country: CA (occurrence: CA)
  Receive Date: 20180824
  Receipt Date: 20180824
  Transmission Date: 20181010
  Serious: Yes (Other)
  Sender: FDA-Public Use
  Company Number: CA-TOLMAR, INC.-TOLG20180473

PATIENT
  Age: 59 Year
  Sex: Male

DRUGS (2)
  1. MOXIFLOXACIN. [Concomitant]
     Active Substance: MOXIFLOXACIN
     Indication: OSTEOMYELITIS
     Dosage: 400 MG
     Route: 048
  2. METRONIDAZOLE. [Suspect]
     Active Substance: METRONIDAZOLE
     Indication: OSTEOMYELITIS
     Dosage: 750 MG
     Route: 048

REACTIONS (7)
  - Speech disorder [Recovered/Resolved]
  - Dysarthria [Recovered/Resolved]
  - Neurotoxicity [Recovered/Resolved]
  - Dysmetria [Recovered/Resolved]
  - Ataxia [Recovered/Resolved]
  - Gait disturbance [Recovered/Resolved]
  - Cerebellar syndrome [Recovered/Resolved]
